FAERS Safety Report 4506048-0 (Version None)
Quarter: 2004Q4

REPORT INFORMATION
  Report Type: 
  Country: None (occurrence: None)
  Receive Date: 20041025
  Receipt Date: 20040319
  Transmission Date: 20050328
  Serious: Yes (Other)
  Sender: FDA-Public Use
  Company Number: US-JNJFOC-20030803772

PATIENT
  Age: 53 Year
  Sex: Female
  Weight: 122.4712 kg

DRUGS (12)
  1. REMICADE [Suspect]
     Indication: RHEUMATOID ARTHRITIS
     Dosage: 3 MG/KG INTRAVENOUS
     Route: 042
     Dates: start: 20030709
  2. ARAVA [Concomitant]
  3. VIOXX [Concomitant]
  4. MOBIC [Concomitant]
  5. GLUCOPHAGE [Concomitant]
  6. ACTOS [Concomitant]
  7. AMARYL [Concomitant]
  8. ZESTRIL [Concomitant]
  9. AVISTA (RALOXIFENE HYDROCHLORIDE) [Concomitant]
  10. VITAMIN E [Concomitant]
  11. OXYCONTIN [Concomitant]
  12. PREDNISONE (PREDNISONE)` [Concomitant]

REACTIONS (6)
  - ARTHRALGIA [None]
  - CELLULITIS [None]
  - MALAISE [None]
  - PAIN [None]
  - RASH [None]
  - TOOTH ABSCESS [None]
